FAERS Safety Report 9617477 (Version 2)
Quarter: 2013Q4

REPORT INFORMATION
  Report Type: Spontaneous
  Country: US (occurrence: US)
  Receive Date: 20131011
  Receipt Date: 20131011
  Transmission Date: 20140711
  Serious: Yes (Hospitalization)
  Sender: FDA-Public Use
  Company Number: US-DENDREON CORPORATION-2012PROUSA02380

PATIENT
  Age: 55 Year
  Sex: Male
  Weight: 80.1 kg

DRUGS (22)
  1. PROVENGE [Suspect]
     Indication: PROSTATE CANCER METASTATIC
     Dosage: 250 ML, SINGLE
     Route: 042
     Dates: start: 20121207, end: 20121207
  2. OS-CAL + D [Concomitant]
     Dosage: 1 TABLETS, QD
     Route: 048
  3. ZOCOR [Concomitant]
     Dosage: 20 MG, QD
     Route: 048
  4. OMEGA 3 FISH OIL [Concomitant]
     Route: 048
  5. CALCIUM CARBONATE AND VITAMIN D [Concomitant]
     Route: 048
  6. MAG DELAY [Concomitant]
     Dosage: 64 MG, QD
     Route: 048
  7. LOPRESSOR [Concomitant]
     Indication: HYPERTENSION
     Dosage: 100 MG, BID
     Route: 048
  8. LASIX [Concomitant]
     Indication: OEDEMA
     Dosage: 40 MG, QD
     Route: 048
  9. AMARYL [Concomitant]
     Indication: DIABETES MELLITUS
     Dosage: 4 MG, QD
     Route: 048
  10. NIFEDIPINE [Concomitant]
     Indication: HYPERTENSION
     Dosage: 20 MG, EVERY 8 HOURS
     Route: 048
  11. PROTONIX [Concomitant]
     Indication: GASTRITIS EROSIVE
     Dosage: 40 MG, BID
     Route: 048
  12. KLOR-CON M20 [Concomitant]
     Indication: OEDEMA
     Dosage: 1 TABLETS, QD
     Route: 048
  13. POLYETHYLENE GLYCOL 3350 [Concomitant]
     Indication: CONSTIPATION
     Dosage: 17 G, QD AS NEEDED
     Route: 048
  14. THERAGRAN [Concomitant]
     Dosage: 1 TABLETS, QD
     Route: 048
  15. INSULIN NPH [Concomitant]
     Dosage: 40 IU, EVERY MORNING
     Route: 058
  16. INSULIN NPH [Concomitant]
     Dosage: 25 IU, HS
     Route: 058
  17. NOVOLOG [Concomitant]
  18. LORTAB [Concomitant]
     Indication: PROSTATE CANCER
     Dosage: 1 TABLETS, EVERY 6-8 HOURS PRN
     Route: 048
  19. AMBIEN [Concomitant]
     Indication: INSOMNIA
     Dosage: 1 TABLETS, HS
     Route: 048
  20. ZYTIGA [Concomitant]
     Dosage: 1000 MG, QD
     Route: 048
  21. ZOFRAN [Concomitant]
     Indication: NAUSEA
     Dosage: 1 TABLETS, TID AS NEEDED
  22. DURAGESIC [Concomitant]

REACTIONS (3)
  - Pneumonia [Not Recovered/Not Resolved]
  - Staphylococcal bacteraemia [Recovered/Resolved]
  - Urinary tract infection [Unknown]
